FAERS Safety Report 6448371-9 (Version None)
Quarter: 2009Q4

REPORT INFORMATION
  Report Type: 
  Country: None (occurrence: None)
  Receive Date: 20091120
  Receipt Date: 20091106
  Transmission Date: 20100525
  Serious: Yes (Other)
  Sender: FDA-Public Use
  Company Number: PHHY2009AU48324

PATIENT
  Sex: Male

DRUGS (8)
  1. GLEEVEC [Suspect]
     Dosage: 400 MG, UNK
     Dates: start: 20080716, end: 20080917
  2. GLEEVEC [Suspect]
     Dosage: 300 MG, UNK
     Dates: start: 20081210, end: 20090615
  3. TRAMADOL [Concomitant]
  4. VERAPAMIL - SLOW RELEASE [Concomitant]
  5. HYDROCHLOROTHIAZIDE [Concomitant]
  6. OMEPRAZOLE [Concomitant]
  7. PROCHLORPERAZINE [Concomitant]
  8. IRBESARTAN [Concomitant]

REACTIONS (23)
  - ABDOMINAL PAIN [None]
  - ADRENAL MASS [None]
  - ALANINE AMINOTRANSFERASE INCREASED [None]
  - ASCITES [None]
  - ATRIOVENTRICULAR DISSOCIATION [None]
  - BILIARY ANASTOMOSIS [None]
  - BLOOD ALKALINE PHOSPHATASE INCREASED [None]
  - BLOOD BILIRUBIN INCREASED [None]
  - BLOOD CREATININE INCREASED [None]
  - COLITIS [None]
  - COLLAPSE OF LUNG [None]
  - DIARRHOEA [None]
  - GAMMA-GLUTAMYLTRANSFERASE INCREASED [None]
  - LIVER FUNCTION TEST ABNORMAL [None]
  - LUNG NEOPLASM [None]
  - MALIGNANT NEOPLASM PROGRESSION [None]
  - NODAL RHYTHM [None]
  - PLATELET COUNT INCREASED [None]
  - PLEURAL EFFUSION [None]
  - PNEUMOBILIA [None]
  - RASH [None]
  - RED BLOOD CELL COUNT DECREASED [None]
  - STENT PLACEMENT [None]
